FAERS Safety Report 17494484 (Version 1)
Quarter: 2020Q1

REPORT INFORMATION
  Report Type: Spontaneous
  Country: US (occurrence: US)
  Receive Date: 20200221
  Receipt Date: 20200221
  Transmission Date: 20200409
  Serious: Yes (Hospitalization)
  Sender: FDA-Public Use
  Company Number: None

PATIENT
  Age: 65 Year
  Sex: Female

DRUGS (18)
  1. SILDENAFIL. [Concomitant]
     Active Substance: SILDENAFIL
  2. METFORMIN [Concomitant]
     Active Substance: METFORMIN HYDROCHLORIDE
  3. NORTRIPTYLINE [Concomitant]
     Active Substance: NORTRIPTYLINE
  4. SIMVASTATIN. [Concomitant]
     Active Substance: SIMVASTATIN
  5. OXYGEN SUPPLEMENTAL [Concomitant]
     Active Substance: OXYGEN
  6. VITAMIN B12 [Concomitant]
     Active Substance: CYANOCOBALAMIN
  7. FERROUS SULFATE. [Concomitant]
     Active Substance: FERROUS SULFATE
  8. GLIPIZIDE. [Concomitant]
     Active Substance: GLIPIZIDE
  9. ASPIRIN. [Concomitant]
     Active Substance: ASPIRIN
  10. AMBRISENTAN 5MG TABLETS 30/BO: 5MG [Suspect]
     Active Substance: AMBRISENTAN
     Indication: PULMONARY ARTERIAL HYPERTENSION
     Route: 048
     Dates: start: 202001, end: 202002
  11. LOSARTAN. [Concomitant]
     Active Substance: LOSARTAN
  12. PANTOPRAZOLE [Concomitant]
     Active Substance: PANTOPRAZOLE
  13. POTASSIUM CHLORIDE. [Concomitant]
     Active Substance: POTASSIUM CHLORIDE
  14. VITAMIN D3 [Concomitant]
     Active Substance: CHOLECALCIFEROL
  15. BUMETANIDE. [Concomitant]
     Active Substance: BUMETANIDE
  16. HUMULIN N [Concomitant]
     Active Substance: INSULIN HUMAN
  17. ATENOLOL. [Concomitant]
     Active Substance: ATENOLOL
  18. FLUOXETINE [Concomitant]
     Active Substance: FLUOXETINE HYDROCHLORIDE

REACTIONS (5)
  - Weight increased [None]
  - Peripheral swelling [None]
  - Generalised oedema [None]
  - Cardiac failure congestive [None]
  - Malabsorption [None]

NARRATIVE: CASE EVENT DATE: 20200206
